FAERS Safety Report 6991732-X (Version None)
Quarter: 2010Q3

REPORT INFORMATION
  Report Type: 
  Country: None (occurrence: None)
  Receive Date: 20100917
  Receipt Date: 20100816
  Transmission Date: 20110219
  Serious: No
  Sender: FDA-Public Use
  Company Number: US-PFIZER INC-2010103022

PATIENT
  Sex: Female
  Weight: 70 kg

DRUGS (1)
  1. LYRICA [Suspect]
     Indication: PERIPHERAL NERVE INJURY
     Dosage: 50 MG, 2X/DAY
     Route: 048
     Dates: start: 20090101

REACTIONS (3)
  - DISTURBANCE IN ATTENTION [None]
  - DRY MOUTH [None]
  - WEIGHT FLUCTUATION [None]
